FAERS Safety Report 6640805-X (Version None)
Quarter: 2010Q1

REPORT INFORMATION
  Report Type: 
  Country: None (occurrence: None)
  Receive Date: 20100318
  Receipt Date: 20100312
  Transmission Date: 20100710
  Serious: Yes (Hospitalization)
  Sender: FDA-Public Use
  Company Number: US-ELI_LILLY_AND_COMPANY-US201003003771

PATIENT
  Sex: Female

DRUGS (5)
  1. HUMALOG [Suspect]
     Indication: DIABETES MELLITUS
     Dosage: UNK, AS NEEDED
     Dates: start: 19960101
  2. HUMULIN R [Suspect]
     Indication: DIABETES MELLITUS
     Dosage: UNK, AS NEEDED
     Dates: end: 19960101
  3. HUMULIN N [Suspect]
     Indication: DIABETES MELLITUS
     Dosage: UNK, 2/D
     Dates: end: 19960101
  4. HUMULIN L [Suspect]
     Indication: DIABETES MELLITUS
     Dosage: UNK, 2/D
     Dates: end: 19960101
  5. LANTUS [Concomitant]

REACTIONS (3)
  - BLOOD GLUCOSE FLUCTUATION [None]
  - BLOOD GLUCOSE INCREASED [None]
  - WRONG DRUG ADMINISTERED [None]
